FAERS Safety Report 14751201 (Version 1)
Quarter: 2018Q2

REPORT INFORMATION
  Report Type: Spontaneous
  Country: US (occurrence: US)
  Receive Date: 20180412
  Receipt Date: 20180412
  Transmission Date: 20180711
  Serious: Yes (Hospitalization, Other)
  Sender: FDA-Public Use
  Company Number: US-AUROBINDO-AUR-APL-2018-019897

PATIENT
  Age: 15 Year
  Sex: Female

DRUGS (2)
  1. OLANZAPINE. [Suspect]
     Active Substance: OLANZAPINE
     Dosage: UNK
     Route: 065
  2. OLANZAPINE. [Suspect]
     Active Substance: OLANZAPINE
     Indication: PRODUCT USED FOR UNKNOWN INDICATION
     Dosage: AS NECESSARY
     Route: 065

REACTIONS (2)
  - Hyperglycaemia [Recovering/Resolving]
  - Malnutrition [Unknown]
